FAERS Safety Report 9656853 (Version 2)
Quarter: 2013Q4

REPORT INFORMATION
  Report Type: Spontaneous
  Country: FR (occurrence: FR)
  Receive Date: 20131030
  Receipt Date: 20131206
  Transmission Date: 20140711
  Serious: Yes (Hospitalization, Other)
  Sender: FDA-Public Use
  Company Number: FR-PFIZER INC-2013305510

PATIENT
  Age: 37 Year
  Sex: Male

DRUGS (6)
  1. ADVIL [Suspect]
     Indication: INFECTION
     Dosage: 400 MG, 3X/DAY
     Route: 048
     Dates: start: 20131010, end: 20131011
  2. SOLUPRED [Suspect]
     Indication: INFECTION
     Dosage: 60 MG, DAILY
     Route: 048
     Dates: start: 20131008, end: 20131009
  3. AMOXICILLIN [Concomitant]
     Dosage: 3 G, DAILY
     Dates: start: 20131008
  4. AUGMENTIN [Concomitant]
     Dosage: 3 G, DAILY
     Dates: start: 20131010
  5. RHINOFLUIMUCIL [Concomitant]
     Dosage: UNK
     Dates: start: 20131010
  6. PARACETAMOL [Concomitant]
     Dosage: UNK
     Dates: start: 20131010

REACTIONS (10)
  - Condition aggravated [Recovered/Resolved]
  - Oxygen saturation decreased [Recovered/Resolved]
  - Pneumonia [Recovered/Resolved]
  - Cellulitis [Recovered/Resolved]
  - Myocarditis [Recovered/Resolved]
  - Sepsis [Recovered/Resolved]
  - Left ventricular dysfunction [Unknown]
  - Lymphadenopathy [Unknown]
  - Inflammation [Unknown]
  - Hypokinesia [Unknown]
